FAERS Safety Report 4746067-2 (Version None)
Quarter: 2005Q3

REPORT INFORMATION
  Report Type: 
  Country: None (occurrence: None)
  Receive Date: 20050816
  Receipt Date: 20050725
  Transmission Date: 20060218
  Serious: Yes (Hospitalization)
  Sender: FDA-Public Use
  Company Number: JP-ROCHE-411608

PATIENT
  Age: 64 Year
  Sex: Male

DRUGS (10)
  1. TORSEMIDE [Suspect]
     Indication: HYPOTHYROIDISM
     Route: 048
     Dates: start: 20030315, end: 20050712
  2. LASIX [Suspect]
     Indication: HYPOTHYROIDISM
     Route: 048
     Dates: start: 20030315, end: 20050714
  3. URSODIOL [Concomitant]
     Route: 065
     Dates: start: 20000615
  4. ADALAT [Concomitant]
     Dosage: THERAPY WAS INTERRUPTED IN MAR 2003 AND RESTARTED THE SAME MONTH.
  5. ALOSITOL [Concomitant]
     Dates: start: 20030315
  6. AMLODIN [Concomitant]
     Dates: start: 20030315
  7. VERAPAMIL [Concomitant]
     Dates: start: 20050315
  8. MAINTATE [Concomitant]
     Dates: start: 20050515
  9. THYRADIN [Concomitant]
  10. ROCALTROL [Concomitant]

REACTIONS (3)
  - HYPOCALCAEMIA [None]
  - HYPOKALAEMIA [None]
  - HYPOMAGNESAEMIA [None]
